FAERS Safety Report 8139634-X (Version None)
Quarter: 2012Q1

REPORT INFORMATION
  Report Type: 
  Country: None (occurrence: None)
  Receive Date: 20120215
  Receipt Date: 20120208
  Transmission Date: 20120608
  Serious: Yes (Other)
  Sender: FDA-Public Use
  Company Number: PHHY2012CA011697

PATIENT
  Sex: Male

DRUGS (1)
  1. ALISKIREN [Suspect]

REACTIONS (2)
  - HYPOGLYCAEMIA [None]
  - SYNCOPE [None]
